FAERS Safety Report 19753365 (Version 1)
Quarter: 2021Q3

REPORT INFORMATION
  Report Type: Spontaneous
  Country: US (occurrence: US)
  Receive Date: 20210826
  Receipt Date: 20210826
  Transmission Date: 20211014
  Serious: No
  Sender: FDA-Public Use
  Company Number: None

PATIENT
  Age: 55 Year
  Sex: Male

DRUGS (1)
  1. GAZYVA [Suspect]
     Active Substance: OBINUTUZUMAB
     Indication: FOLLICULAR LYMPHOMA
     Dosage: ?          OTHER FREQUENCY:ONCE;?
     Route: 041
     Dates: start: 20210816, end: 20210816

REACTIONS (8)
  - Chest discomfort [None]
  - Nausea [None]
  - Infusion related reaction [None]
  - Blood pressure decreased [None]
  - Unresponsive to stimuli [None]
  - Heart rate decreased [None]
  - Throat irritation [None]
  - Dizziness [None]

NARRATIVE: CASE EVENT DATE: 20210816
